FAERS Safety Report 14044649 (Version 1)
Quarter: 2017Q4

REPORT INFORMATION
  Report Type: Spontaneous
  Country: AU (occurrence: AU)
  Receive Date: 20171005
  Receipt Date: 20171005
  Transmission Date: 20180321
  Serious: Yes (Hospitalization, Other)
  Sender: FDA-Public Use
  Company Number: AU-AMGEN-AUSSP2017148179

PATIENT
  Age: 80 Year
  Sex: Male

DRUGS (8)
  1. PROLIA [Suspect]
     Active Substance: DENOSUMAB
     Indication: OSTEOPOROSIS
     Dosage: UNK
     Route: 065
     Dates: start: 2016
  2. VITAMIN D [Concomitant]
     Active Substance: CHOLECALCIFEROL
     Dosage: (IN THE MORNING AND AT NIGHT)
  3. WARFARIN [Concomitant]
     Active Substance: WARFARIN
     Dosage: 4.5 MG, (AT NIGHT)
  4. LOSEC [Concomitant]
     Active Substance: OMEPRAZOLE
     Dosage: UNK (IN THE MORNING AND AT NIGHT)
  5. LASIX [Concomitant]
     Active Substance: FUROSEMIDE
     Dosage: UNK(IN THE MORNING)
  6. LIPITOR [Concomitant]
     Active Substance: ATORVASTATIN CALCIUM
     Dosage: UNK(IN THE MORNING)
  7. KARVEA [Concomitant]
     Active Substance: IRBESARTAN
     Dosage: UNK(IN THE MORNING)
  8. AVODART [Concomitant]
     Active Substance: DUTASTERIDE
     Dosage: UNK (AT NIGHT)

REACTIONS (1)
  - Leg amputation [Unknown]
